FAERS Safety Report 5290373-2 (Version None)
Quarter: 2007Q2

REPORT INFORMATION
  Report Type: 
  Country: None (occurrence: None)
  Receive Date: 20070409
  Receipt Date: 20070402
  Transmission Date: 20071010
  Serious: Yes (Hospitalization)
  Sender: FDA-Public Use
  Company Number: FR-AVENTIS-200712842GDDC

PATIENT
  Age: 11 Year
  Sex: Female

DRUGS (1)
  1. MINIRIN [Suspect]
     Route: 048
     Dates: start: 20070212, end: 20070219

REACTIONS (1)
  - DRUG INEFFECTIVE FOR UNAPPROVED INDICATION [None]
